FAERS Safety Report 4803450-4 (Version None)
Quarter: 2005Q4

REPORT INFORMATION
  Report Type: 
  Country: None (occurrence: None)
  Receive Date: 20051014
  Receipt Date: 20050930
  Transmission Date: 20060501
  Serious: No
  Sender: FDA-Public Use
  Company Number: 30615

PATIENT
  Age: 58 Year
  Sex: Female

DRUGS (4)
  1. CILOXAN [Suspect]
     Indication: ULCERATIVE KERATITIS
     Dosage: 1 GTT TID, OPHT
     Route: 047
     Dates: start: 20050122, end: 20050207
  2. FLURBIPROFEN [Concomitant]
  3. PARACETAMOL/DEXTROPROPOXYPHENE [Concomitant]
  4. TETRAZEPAM [Concomitant]

REACTIONS (9)
  - ARTHRALGIA [None]
  - BACK PAIN [None]
  - IMPAIRED DRIVING ABILITY [None]
  - INSOMNIA [None]
  - MOVEMENT DISORDER [None]
  - PAIN [None]
  - SHOULDER PAIN [None]
  - TENDON DISORDER [None]
  - WEIGHT DECREASED [None]
